FAERS Safety Report 17663699 (Version 3)
Quarter: 2025Q4

REPORT INFORMATION
  Report Type: Spontaneous
  Country: EU (occurrence: EU)
  Receive Date: 20200414
  Receipt Date: 20251221
  Transmission Date: 20260117
  Serious: Yes (Other)
  Sender: AUROBINDO
  Company Number: EU-002147023-NVSC2020PT093152

PATIENT
  Age: 71 Year
  Sex: Female

DRUGS (9)
  1. MIRTAZAPINE [Suspect]
     Active Substance: MIRTAZAPINE
     Indication: Depression
     Dosage: 30 MILLIGRAM, ONCE A DAY
     Route: 065
  2. CEFTRIAXONE [Suspect]
     Active Substance: CEFTRIAXONE
     Indication: Whipple^s disease
     Dosage: 2 GRAM, TWO TIMES A DAY (4 G DAILY)
     Route: 065
  3. CEFTRIAXONE [Suspect]
     Active Substance: CEFTRIAXONE
     Dosage: 2 GRAM, ONCE A DAY
     Route: 065
  4. SIMVASTATIN [Suspect]
     Active Substance: SIMVASTATIN
     Indication: Dyslipidaemia
     Dosage: 20 MILLIGRAM, ONCE A DAY
     Route: 065
  5. ZOLPIDEM [Suspect]
     Active Substance: ZOLPIDEM TARTRATE
     Indication: Product used for unknown indication
     Dosage: 10 MILLIGRAM, ONCE A DAY
     Route: 065
  6. AMISULPRIDE [Concomitant]
     Active Substance: AMISULPRIDE
     Indication: Product used for unknown indication
     Dosage: 50 MILLIGRAM, ONCE A DAY
     Route: 065
  7. SULFAMETHOXAZOLE AND TRIMETHOPRIM [Concomitant]
     Active Substance: SULFAMETHOXAZOLE\TRIMETHOPRIM
     Indication: Whipple^s disease
     Dosage: 800 MILLIGRAM, ONCE A DAY (800/160 MG)
     Route: 065
  8. DOXYCYCLINE [Concomitant]
     Active Substance: DOXYCYCLINE
     Indication: Whipple^s disease
     Dosage: 100 MILLIGRAM, TWO TIMES A DAY (200 MG DAILY)
     Route: 065
  9. HYDROXYCHLOROQUINE [Concomitant]
     Active Substance: HYDROXYCHLOROQUINE
     Indication: Whipple^s disease
     Dosage: 200 MILLIGRAM, 3 TIMES A DAY (600 MG DAILY)
     Route: 065

REACTIONS (22)
  - Whipple^s disease [Unknown]
  - Decreased appetite [Unknown]
  - Infarction [Unknown]
  - Arthralgia [Unknown]
  - Joint stiffness [Unknown]
  - Skin hyperpigmentation [Unknown]
  - Abdominal distension [Unknown]
  - Diarrhoea [Recovered/Resolved]
  - Pyrexia [Unknown]
  - Asthenia [Recovering/Resolving]
  - Abdominal pain [Recovered/Resolved]
  - Weight decreased [Recovering/Resolving]
  - Pallor [Unknown]
  - Anaemia [Recovered/Resolved]
  - Inflammatory marker increased [Unknown]
  - Hypotension [Unknown]
  - Hypoalbuminaemia [Recovered/Resolved]
  - Oedema peripheral [Unknown]
  - Hypoproteinaemia [Recovered/Resolved]
  - Pleural effusion [Recovered/Resolved]
  - Hepatosplenomegaly [Unknown]
  - Off label use [Unknown]
